FAERS Safety Report 6656193-9 (Version None)
Quarter: 2010Q1

REPORT INFORMATION
  Report Type: 
  Country: None (occurrence: None)
  Receive Date: 20100329
  Receipt Date: 20100111
  Transmission Date: 20100710
  Serious: Yes (Hospitalization)
  Sender: FDA-Public Use
  Company Number: IE-TEVA-228650ISR

PATIENT
  Sex: Male

DRUGS (21)
  1. PREDNISOLONE [Suspect]
     Indication: PROSTATE CANCER
     Route: 048
     Dates: start: 20080922, end: 20090112
  2. ABIRATERONE ACETATE OR PLACEBO [Suspect]
     Indication: PROSTATE CANCER
     Route: 048
     Dates: start: 20080922, end: 20090112
  3. MIRTAZAPINE [Concomitant]
     Indication: DEPRESSION
     Route: 048
     Dates: start: 20090112
  4. ACETYLSALICYLIC ACID [Concomitant]
     Indication: ANTICOAGULANT THERAPY
     Route: 048
     Dates: start: 20090112
  5. CYCLIZINE [Concomitant]
     Indication: NAUSEA
     Route: 048
     Dates: start: 20090112
  6. LANSOPRAZOLE [Concomitant]
     Indication: GASTRITIS
     Route: 048
     Dates: start: 20080906, end: 20081116
  7. PARACETAMOL [Concomitant]
     Indication: PAIN
     Route: 048
     Dates: start: 20081020, end: 20081130
  8. BISOPROLOL FUMARATE [Concomitant]
     Indication: HYPERTENSION
     Route: 048
     Dates: start: 20081117, end: 20090209
  9. METOCLOPRAMIDE [Concomitant]
     Indication: NAUSEA
     Route: 048
     Dates: start: 20081117
  10. AMLODIPINE [Concomitant]
     Indication: HYPERTENSION
     Route: 048
     Dates: start: 20081117
  11. ZOLEDRONIC ACID [Concomitant]
     Indication: BONE DENSITY DECREASED
     Route: 042
     Dates: start: 20081006
  12. FLUPENTIXOL [Concomitant]
     Indication: DEPRESSED MOOD
     Route: 048
     Dates: start: 20090112
  13. ZOPICLONE [Concomitant]
     Indication: INSOMNIA
     Route: 048
     Dates: start: 20090112
  14. ESOMEPRAZOLE [Concomitant]
     Indication: GASTRITIS
     Route: 048
     Dates: start: 20081117
  15. CODEINE PHOSPHATE W/PARACETAMOL [Concomitant]
     Indication: ANALGESIC THERAPY
     Dates: start: 20081130, end: 20090112
  16. OXYCODONE HCL [Concomitant]
     Indication: CANCER PAIN
     Route: 048
     Dates: start: 20081201
  17. RAMIPRIL [Concomitant]
     Indication: BLOOD PRESSURE INCREASED
     Route: 048
     Dates: start: 20081007, end: 20081117
  18. DOMPERIDONE [Concomitant]
     Indication: NAUSEA
     Route: 048
     Dates: start: 20081006, end: 20081117
  19. DOMPERIDONE [Concomitant]
     Route: 048
     Dates: start: 20090112
  20. DOCETAXEL [Concomitant]
     Indication: PROSTATE CANCER
     Dosage: ONCE ONLY.
     Route: 042
     Dates: start: 20090119, end: 20090119
  21. MAGNESIUM SULFATE [Concomitant]
     Indication: CONSTIPATION
     Route: 048
     Dates: start: 20081006, end: 20081130

REACTIONS (20)
  - ANXIETY [None]
  - ARTHRALGIA [None]
  - BACK PAIN [None]
  - CARDIAC MURMUR [None]
  - CEREBRAL ATROPHY [None]
  - CONTUSION [None]
  - CUSHINGOID [None]
  - DIZZINESS [None]
  - FALL [None]
  - FATIGUE [None]
  - JOINT SWELLING [None]
  - LOWER MOTOR NEURONE LESION [None]
  - MALAISE [None]
  - MUSCLE ATROPHY [None]
  - MUSCLE CONTRACTIONS INVOLUNTARY [None]
  - NEUROLOGICAL SYMPTOM [None]
  - PROSTATIC SPECIFIC ANTIGEN INCREASED [None]
  - SERUM FERRITIN INCREASED [None]
  - TREMOR [None]
  - VENOUS PRESSURE JUGULAR INCREASED [None]
